FAERS Safety Report 14508962 (Version 1)
Quarter: 2018Q1

REPORT INFORMATION
  Report Type: Spontaneous
  Country: JP (occurrence: JP)
  Receive Date: 20180209
  Receipt Date: 20180209
  Transmission Date: 20180509
  Serious: Yes (Hospitalization, Other)
  Sender: FDA-Public Use
  Company Number: JP-ASTRAZENECA-2018SE09823

PATIENT
  Age: 52 Year
  Sex: Female

DRUGS (5)
  1. FORXIGA [Suspect]
     Active Substance: DAPAGLIFLOZIN
     Indication: TYPE 2 DIABETES MELLITUS
     Route: 048
     Dates: start: 201707
  2. TRULICITY [Concomitant]
     Active Substance: DULAGLUTIDE
  3. LANTUS XR [Concomitant]
     Active Substance: INSULIN GLARGINE
  4. FORXIGA [Suspect]
     Active Substance: DAPAGLIFLOZIN
     Indication: TYPE 2 DIABETES MELLITUS
     Route: 048
     Dates: start: 201610, end: 201707
  5. GLUFAST [Concomitant]
     Active Substance: MITIGLINIDE

REACTIONS (3)
  - Hyperkeratosis [Unknown]
  - Diabetic foot [Unknown]
  - Toe amputation [Unknown]

NARRATIVE: CASE EVENT DATE: 20171222
